FAERS Safety Report 12606994 (Version 1)
Quarter: 2016Q3

REPORT INFORMATION
  Report Type: Spontaneous
  Country: US (occurrence: US)
  Receive Date: 20160729
  Receipt Date: 20160729
  Transmission Date: 20161109
  Serious: No
  Sender: FDA-Public Use
  Company Number: US-BAYER-2016-147089

PATIENT
  Age: 72 Year
  Sex: Male
  Weight: 79.37 kg

DRUGS (4)
  1. VITAMIN C [Concomitant]
     Active Substance: ASCORBIC ACID
  2. ALEVE [Suspect]
     Active Substance: NAPROXEN SODIUM
     Indication: LUMBAR SPINAL STENOSIS
     Dosage: 3 DF, (AT ONE TIME)
  3. ALEVE [Suspect]
     Active Substance: NAPROXEN SODIUM
     Indication: LUMBAR SPINAL STENOSIS
     Dosage: UNK UNK, ONCE
  4. ALEVE [Suspect]
     Active Substance: NAPROXEN SODIUM
     Indication: LUMBAR SPINAL STENOSIS
     Dosage: 2 DF, BID

REACTIONS (1)
  - Product use issue [None]
